FAERS Safety Report 6458763-X (Version None)
Quarter: 2009Q4

REPORT INFORMATION
  Report Type: 
  Country: None (occurrence: None)
  Receive Date: 20091127
  Receipt Date: 20091116
  Transmission Date: 20100525
  Serious: Yes (Disabling)
  Sender: FDA-Public Use
  Company Number: JP-ROCHE-669935

PATIENT
  Age: 68 Year
  Sex: Male
  Weight: 60 kg

DRUGS (6)
  1. TAMIFLU [Suspect]
     Indication: INFLUENZA
     Route: 048
     Dates: start: 20091105, end: 20091107
  2. LOXONIN [Suspect]
     Indication: INFLUENZA
     Route: 048
     Dates: start: 20091105, end: 20091107
  3. MUCOSTA [Concomitant]
     Route: 048
  4. ZYLORIC [Concomitant]
     Route: 048
  5. GASTER [Concomitant]
     Dosage: DRUG REPORTED AS GASTER D.
     Route: 048
  6. GASMOTIN [Concomitant]
     Dosage: DRUG REPORTED AS MOSAPRIDE CITRATE.
     Route: 048

REACTIONS (1)
  - ENCEPHALOPATHY [None]
